FAERS Safety Report 7629724-X (Version None)
Quarter: 2011Q3

REPORT INFORMATION
  Report Type: 
  Country: None (occurrence: None)
  Receive Date: 20110722
  Receipt Date: 20110714
  Transmission Date: 20111222
  Serious: Yes (Other)
  Sender: FDA-Public Use
  Company Number: DE-ROCHE-790626

PATIENT
  Age: 54 Year
  Sex: Female

DRUGS (4)
  1. PAMIDRONATE DISODIUM [Suspect]
     Dosage: DURATION 3 YEARS
     Route: 040
     Dates: start: 20070101, end: 20100601
  2. CORTISONE ACETATE [Concomitant]
  3. ALENDRONATE SODIUM [Suspect]
     Dosage: DURATION 18 MONTHS, DOSAGE FORM: 245 TABLETS
     Route: 048
     Dates: start: 20030601, end: 20041201
  4. IBANDRONATE SODIUM [Suspect]
     Dosage: DURATION 21 MONTHS, DOSAGE FORM: 245 TABLETS
     Route: 048
     Dates: start: 20041201, end: 20060901

REACTIONS (3)
  - TOOTH EXTRACTION [None]
  - OSTEONECROSIS OF JAW [None]
  - ABSCESS JAW [None]
